FAERS Safety Report 22026394 (Version 2)
Quarter: 2024Q1

REPORT INFORMATION
  Report Type: Spontaneous
  Country: DK (occurrence: DK)
  Receive Date: 20230223
  Receipt Date: 20240112
  Transmission Date: 20240409
  Serious: Yes (Hospitalization, Other)
  Sender: FDA-Public Use
  Company Number: DK-MLMSERVICE-20230208-4095129-1

PATIENT
  Age: 58 Year
  Sex: Male

DRUGS (6)
  1. MYCOPHENOLATE MOFETIL [Suspect]
     Active Substance: MYCOPHENOLATE MOFETIL
     Indication: Immunosuppressant drug therapy
  2. TACROLIMUS [Suspect]
     Active Substance: TACROLIMUS
     Indication: Immunosuppressant drug therapy
  3. PREDNISOLONE [Suspect]
     Active Substance: PREDNISOLONE
     Indication: Immunosuppressant drug therapy
     Route: 048
  4. CLOBETASOL PROPIONATE [Suspect]
     Active Substance: CLOBETASOL PROPIONATE
     Indication: Neurodermatitis
     Dosage: STRENGTH: 0.5 MG/G
     Route: 061
  5. CLOBETASOL PROPIONATE [Suspect]
     Active Substance: CLOBETASOL PROPIONATE
     Indication: Neurodermatitis
     Dosage: 3-HOUR OCCLUSIONAL TOPICAL STEROIS ON THE ENTIRE BODY EXCEPT THE FACE FOR TWO WEEKS
     Route: 061
  6. CLOBETASOL PROPIONATE [Suspect]
     Active Substance: CLOBETASOL PROPIONATE
     Indication: Neurodermatitis
     Route: 061

REACTIONS (3)
  - Glucose tolerance impaired [Recovering/Resolving]
  - Diabetes mellitus [Recovering/Resolving]
  - Hyperglycaemic hyperosmolar nonketotic syndrome [Recovering/Resolving]
